FAERS Safety Report 4870458-2 (Version None)
Quarter: 2006Q1

REPORT INFORMATION
  Report Type: 
  Country: None (occurrence: None)
  Receive Date: 20060103
  Receipt Date: 20051220
  Transmission Date: 20060701
  Serious: Yes (Death)
  Sender: FDA-Public Use
  Company Number: DE-AMGEN-UK162268

PATIENT
  Sex: Female
  Weight: 61 kg

DRUGS (4)
  1. NEULASTA [Suspect]
     Indication: CHEMOTHERAPY
     Route: 065
     Dates: start: 20050729
  2. TAXOL [Concomitant]
     Route: 042
     Dates: start: 20050728, end: 20050728
  3. ADRIAMYCIN [Concomitant]
     Route: 042
     Dates: start: 20050728, end: 20050728
  4. CYCLOPHOSPHAMIDE [Concomitant]
     Route: 042
     Dates: start: 20050728, end: 20050728

REACTIONS (5)
  - COR PULMONALE [None]
  - MULTI-ORGAN FAILURE [None]
  - PULMONARY EMBOLISM [None]
  - SEPSIS [None]
  - WHITE BLOOD CELL COUNT DECREASED [None]
